FAERS Safety Report 23628644 (Version 4)
Quarter: 2024Q3

REPORT INFORMATION
  Report Type: Spontaneous
  Country: US (occurrence: US)
  Receive Date: 20240313
  Receipt Date: 20240702
  Transmission Date: 20241016
  Serious: Yes (Other)
  Sender: BRISTOL MYERS SQUIBB
  Company Number: US-BRISTOL-MYERS SQUIBB COMPANY-2024-038818

PATIENT
  Age: 67 Year
  Sex: Female

DRUGS (5)
  1. LENALIDOMIDE [Suspect]
     Active Substance: LENALIDOMIDE
     Indication: Plasma cell myeloma
     Dosage: FREQUENCY: 1 CAPSULE BY MOUTH EVERY DAY FOR 21 DAYS REST ONE WEEK AND REPEAT.
     Route: 048
     Dates: start: 20240123
  2. LENALIDOMIDE [Suspect]
     Active Substance: LENALIDOMIDE
     Dosage: FREQUENCY: 1 CAPSULE BY MOUTH EVERY DAY FOR 21 DAYS REST ONE WEEK AND REPEAT.
     Route: 048
  3. LENALIDOMIDE [Suspect]
     Active Substance: LENALIDOMIDE
     Dosage: FREQUENCY: TAKE 1 CAPSULE BY MOUTH EVERY DAY FOR 21 DAYS THEN REST ONE WEEK AND REPEAT
     Route: 048
  4. DEXAMETHASONE [Suspect]
     Active Substance: DEXAMETHASONE
     Indication: Product used for unknown indication
  5. DEXAMETHASONE [Suspect]
     Active Substance: DEXAMETHASONE
     Dosage: DECREASED

REACTIONS (4)
  - Laryngitis [Recovering/Resolving]
  - Peripheral swelling [Recovering/Resolving]
  - Neuropathy peripheral [Not Recovered/Not Resolved]
  - Joint swelling [Recovering/Resolving]
